FAERS Safety Report 6813853-4 (Version None)
Quarter: 2010Q3

REPORT INFORMATION
  Report Type: 
  Country: None (occurrence: None)
  Receive Date: 20100702
  Receipt Date: 20100623
  Transmission Date: 20110219
  Serious: No
  Sender: FDA-Public Use
  Company Number: US-BIOGENIDEC-2010BI014454

PATIENT
  Sex: Female

DRUGS (1)
  1. TYSABRI [Suspect]
     Indication: MULTIPLE SCLEROSIS
     Route: 042
     Dates: start: 20090508

REACTIONS (17)
  - ABDOMINAL PAIN UPPER [None]
  - BACK PAIN [None]
  - BALANCE DISORDER [None]
  - BLOOD URINE PRESENT [None]
  - DEPRESSED MOOD [None]
  - FACIAL PAIN [None]
  - FATIGUE [None]
  - GASTRIC ULCER [None]
  - HEADACHE [None]
  - HEPATIC PAIN [None]
  - HEPATOMEGALY [None]
  - INSOMNIA [None]
  - KIDNEY INFECTION [None]
  - OESOPHAGEAL ULCER [None]
  - PRURITUS [None]
  - STRESS [None]
  - VIITH NERVE PARALYSIS [None]
